FAERS Safety Report 10042424 (Version 6)
Quarter: 2015Q2

REPORT INFORMATION
  Report Type: Report from Study
  Country: US (occurrence: US)
  Receive Date: 20140327
  Receipt Date: 20150421
  Transmission Date: 20150821
  Serious: Yes (Other)
  Sender: FDA-Public Use
  Company Number: US-SA-2014SA027289

PATIENT
  Age: 54 Year
  Sex: Female
  Weight: 150 kg

DRUGS (16)
  1. AUBAGIO [Suspect]
     Active Substance: TERIFLUNOMIDE
     Indication: RELAPSING-REMITTING MULTIPLE SCLEROSIS
     Route: 048
     Dates: start: 20131212, end: 201403
  2. AUBAGIO [Suspect]
     Active Substance: TERIFLUNOMIDE
     Indication: RELAPSING-REMITTING MULTIPLE SCLEROSIS
     Route: 048
  3. AUBAGIO [Suspect]
     Active Substance: TERIFLUNOMIDE
     Indication: RELAPSING-REMITTING MULTIPLE SCLEROSIS
     Route: 048
     Dates: start: 20140318, end: 20141212
  4. LOSARTAN [Concomitant]
     Active Substance: LOSARTAN
     Indication: BLOOD PRESSURE
     Dates: start: 1987
  5. GABAPENTIN. [Concomitant]
     Active Substance: GABAPENTIN
     Indication: SEIZURE
     Dosage: AM/PM
     Dates: start: 2010
  6. PANTHENOL/RETINOL/THIAMINE HYDROCHLORIDE/ASCORBIC ACID/ERGOCALCIFEROL/FOLIC ACID/RIBOFLAVIN/NICOTINA [Concomitant]
     Indication: ROUTINE HEALTH MAINTENANCE
     Dosage: AM
     Dates: start: 1987
  7. GABAPENTIN. [Concomitant]
     Active Substance: GABAPENTIN
     Indication: SEIZURE
     Dosage: AM/PM
  8. CALCIUM [Concomitant]
     Active Substance: CALCIUM
     Indication: ROUTINE HEALTH MAINTENANCE
     Dates: start: 1987
  9. GABAPENTIN. [Concomitant]
     Active Substance: GABAPENTIN
     Indication: HEADACHE
     Dosage: AM/PM
  10. VITAMIN B12 [Concomitant]
     Active Substance: CYANOCOBALAMIN
     Indication: ROUTINE HEALTH MAINTENANCE
     Route: 060
     Dates: start: 1987
  11. ESTRADIOL. [Concomitant]
     Active Substance: ESTRADIOL
     Indication: HORMONE REPLACEMENT THERAPY
     Dates: start: 2010
  12. CRANBERRY EXTRACT [Concomitant]
     Active Substance: CRANBERRY JUICE
     Indication: ROUTINE HEALTH MAINTENANCE
     Dates: start: 1987
  13. HYDROCHLOROTHIAZIDE. [Concomitant]
     Active Substance: HYDROCHLOROTHIAZIDE
     Indication: BLOOD PRESSURE
     Dates: start: 2000
  14. GABAPENTIN. [Concomitant]
     Active Substance: GABAPENTIN
     Indication: HEADACHE
     Dosage: AM/PM
     Dates: start: 2010
  15. BIOTIN [Concomitant]
     Active Substance: BIOTIN
     Indication: ROUTINE HEALTH MAINTENANCE
     Dosage: AM
     Dates: start: 1987
  16. ANTIHYPERTENSIVES [Concomitant]
     Active Substance: UNSPECIFIED INGREDIENT
     Indication: HYPERTENSION

REACTIONS (18)
  - Insomnia [Not Recovered/Not Resolved]
  - Fatigue [Unknown]
  - Muscle spasticity [Unknown]
  - Hot flush [Recovering/Resolving]
  - Burning sensation [Recovering/Resolving]
  - Abdominal discomfort [Unknown]
  - Feeling hot [Recovering/Resolving]
  - Temperature intolerance [Unknown]
  - Alopecia [Not Recovered/Not Resolved]
  - Flushing [Recovering/Resolving]
  - Malaise [Not Recovered/Not Resolved]
  - Neuropathy peripheral [Unknown]
  - Partial seizures [Unknown]
  - Nausea [Not Recovered/Not Resolved]
  - Seizure [Recovered/Resolved]
  - Condition aggravated [Unknown]
  - Pain of skin [Unknown]
  - Headache [Unknown]

NARRATIVE: CASE EVENT DATE: 2014
